FAERS Safety Report 10481751 (Version 3)
Quarter: 2014Q4

REPORT INFORMATION
  Report Type: Report from Study
  Country: AU (occurrence: AU)
  Receive Date: 20140929
  Receipt Date: 20141112
  Transmission Date: 20150528
  Serious: Yes (Other)
  Sender: FDA-Public Use
  Company Number: PHHY2014AU121771

PATIENT
  Sex: Female

DRUGS (2)
  1. SOM230 [Suspect]
     Active Substance: PASIREOTIDE
     Indication: NEUROENDOCRINE TUMOUR
     Dosage: 600 UG, BID
     Route: 058
     Dates: start: 20110208
  2. SOM230 [Suspect]
     Active Substance: PASIREOTIDE
     Indication: OFF LABEL USE

REACTIONS (4)
  - Gait disturbance [Recovered/Resolved]
  - Ischaemic stroke [Recovered/Resolved]
  - Aphasia [Recovered/Resolved]
  - Motor dysfunction [Recovered/Resolved]

NARRATIVE: CASE EVENT DATE: 2014
